FAERS Safety Report 5569638-2 (Version None)
Quarter: 2007Q4

REPORT INFORMATION
  Report Type: 
  Country: None (occurrence: None)
  Receive Date: 20071220
  Receipt Date: 20071211
  Transmission Date: 20080405
  Serious: Yes (Hospitalization, Congenital Anomaly)
  Sender: FDA-Public Use
  Company Number: A0683126A

PATIENT
  Sex: Female
  Weight: 4.2 kg

DRUGS (1)
  1. PAXIL [Suspect]
     Indication: DRUG USE FOR UNKNOWN INDICATION
     Dates: start: 20000403

REACTIONS (31)
  - ABDOMINAL PAIN [None]
  - ATRIAL SEPTAL DEFECT [None]
  - BLOOD ALBUMIN DECREASED [None]
  - CARDIAC MURMUR [None]
  - CHEST DISCOMFORT [None]
  - COAGULOPATHY [None]
  - CONGENITAL ECTOPIC BLADDER [None]
  - CONGENITAL OVARIAN ANOMALY [None]
  - CONGENITAL UTERINE ANOMALY [None]
  - CONSTIPATION [None]
  - CYST [None]
  - DRUG EXPOSURE DURING PREGNANCY [None]
  - EXOMPHALOS [None]
  - HYDRONEPHROSIS [None]
  - HYPERKALAEMIA [None]
  - HYPONATRAEMIA [None]
  - INTESTINAL OBSTRUCTION [None]
  - LARGE FOR DATES BABY [None]
  - NAUSEA [None]
  - PATENT DUCTUS ARTERIOSUS [None]
  - PULMONARY OEDEMA [None]
  - RASH ERYTHEMATOUS [None]
  - RASH PUSTULAR [None]
  - SEPSIS [None]
  - SKIN CANDIDA [None]
  - SKIN ULCER [None]
  - URINARY INCONTINENCE [None]
  - VESICAL FISTULA [None]
  - VESICOURETERIC REFLUX [None]
  - WHEEZING [None]
  - WOUND INFECTION STAPHYLOCOCCAL [None]
